FAERS Safety Report 5173321-5 (Version None)
Quarter: 2006Q4

REPORT INFORMATION
  Report Type: 
  Country: None (occurrence: None)
  Receive Date: 20061206
  Receipt Date: 20060827
  Transmission Date: 20070319
  Serious: Yes (Other)
  Sender: FDA-Public Use
  Company Number: 2006109959

PATIENT
  Sex: Female

DRUGS (2)
  1. CELEBREX [Suspect]
     Dates: start: 20060601
  2. CORTISONE ACETATE [Suspect]
     Indication: HYPERSENSITIVITY
     Dosage: (FREQUENCY:  OTO)
     Dates: start: 20060601, end: 20060601

REACTIONS (11)
  - ABDOMINAL PAIN UPPER [None]
  - BACK PAIN [None]
  - BURNING SENSATION [None]
  - DIZZINESS [None]
  - DRUG HYPERSENSITIVITY [None]
  - DYSARTHRIA [None]
  - ERYTHEMA [None]
  - FEELING ABNORMAL [None]
  - PRURITUS [None]
  - SKIN DISCOLOURATION [None]
  - THROAT TIGHTNESS [None]
